FAERS Safety Report 8052205-9 (Version None)
Quarter: 2012Q1

REPORT INFORMATION
  Report Type: 
  Country: None (occurrence: None)
  Receive Date: 20120118
  Receipt Date: 20120116
  Transmission Date: 20120608
  Serious: No
  Sender: FDA-Public Use
  Company Number: US-PFIZER INC-2012012269

PATIENT
  Sex: Female
  Weight: 99.773 kg

DRUGS (4)
  1. SINGULAIR [Concomitant]
     Dosage: 10 MG, UNK
  2. EFFEXOR XR [Suspect]
     Indication: ANXIETY
     Dosage: 75 MG, 1X/DAY
     Route: 048
  3. ALLEGRA [Concomitant]
     Dosage: UNK
  4. ADVAIR DISKUS 100/50 [Concomitant]
     Indication: ASTHMA
     Dosage: UNK

REACTIONS (1)
  - HEADACHE [None]
